FAERS Safety Report 25135902 (Version 1)
Quarter: 2025Q1

REPORT INFORMATION
  Report Type: Spontaneous
  Country: US (occurrence: None)
  Receive Date: 20250327
  Receipt Date: 20250327
  Transmission Date: 20250409
  Serious: Yes (Other)
  Sender: FDA-CTU
  Company Number: None

PATIENT
  Age: 64 Year
  Sex: Female

DRUGS (7)
  1. XIIDRA [Suspect]
     Active Substance: LIFITEGRAST
     Indication: Dry eye
     Dosage: 1 DROP EVERY 12 HOURS
     Route: 047
     Dates: start: 20250313, end: 20250318
  2. XDEMVY [Suspect]
     Active Substance: LOTILANER
     Indication: Demodex blepharitis
     Dosage: OTHER QUANTITY : 1 DROP(S)?FREQUENCY : EVERY 12 HOURS?
     Route: 047
     Dates: start: 20250307, end: 20250318
  3. MIEBO [Concomitant]
     Active Substance: PERFLUOROHEXYLOCTANE
  4. Omega Dry Eye [Concomitant]
  5. Eye Promise Restore [Concomitant]
  6. VITAMIN B COMPLEX [Concomitant]
     Active Substance: CYANOCOBALAMIN\DEXPANTHENOL\NIACINAMIDE\PYRIDOXINE HYDROCHLORIDE\RIBOFLAVIN 5^-PHOSPHATE SODIUM\THIA
  7. VITAMINS [Concomitant]
     Active Substance: VITAMINS

REACTIONS (6)
  - Wheezing [None]
  - Headache [None]
  - Diplopia [None]
  - Feeling abnormal [None]
  - Vision blurred [None]
  - Photosensitivity reaction [None]

NARRATIVE: CASE EVENT DATE: 20250318
